FAERS Safety Report 4772581-X (Version None)
Quarter: 2005Q3

REPORT INFORMATION
  Report Type: 
  Country: None (occurrence: None)
  Receive Date: 20050914
  Receipt Date: 20041115
  Transmission Date: 20060218
  Serious: Yes (Death)
  Sender: FDA-Public Use
  Company Number: 163-20785-04110378

PATIENT
  Age: 85 Year
  Sex: Female
  Weight: 58.0604 kg

DRUGS (18)
  1. THALOMID [Suspect]
     Indication: MULTIPLE MYELOMA
     Dosage: 100 MG, QHS, ORAL; 200 MG, QHS, ORAL
     Route: 048
     Dates: end: 20041020
  2. THALOMID [Suspect]
     Indication: MULTIPLE MYELOMA
     Dosage: 100 MG, QHS, ORAL; 200 MG, QHS, ORAL
     Route: 048
     Dates: start: 20040826
  3. DILTIAZEM CD (DILTIAZEM) [Concomitant]
  4. COZAAR [Concomitant]
  5. LEVOXYL [Concomitant]
  6. LORAZEPAM [Concomitant]
  7. PROTONIX [Concomitant]
  8. OCUVITE [Concomitant]
  9. CITRACAL (CALCIUM CITRATE) [Concomitant]
  10. VITAMIN C (ASCORBIC ACID) [Concomitant]
  11. CENTRUM SILVER [Concomitant]
  12. GARLIC [Concomitant]
  13. TYLENOL [Concomitant]
  14. DARVOCET-N (PROPACET) [Concomitant]
  15. COUMADIN [Concomitant]
  16. DEXAMETHASONE [Concomitant]
  17. SENOKOT - S (SENOKOT-S) [Concomitant]
  18. AREDIA [Concomitant]

REACTIONS (6)
  - ASTHENIA [None]
  - CHILLS [None]
  - DEATH [None]
  - HEADACHE [None]
  - ILL-DEFINED DISORDER [None]
  - PYREXIA [None]
